FAERS Safety Report 7084129-8 (Version None)
Quarter: 2010Q4

REPORT INFORMATION
  Report Type: 
  Country: None (occurrence: None)
  Receive Date: 20101104
  Receipt Date: 20101019
  Transmission Date: 20110411
  Serious: Yes (Other)
  Sender: FDA-Public Use
  Company Number: US-BAYER-201017053NA

PATIENT
  Age: 23 Year
  Sex: Female
  Weight: 59 kg

DRUGS (3)
  1. YAZ [Suspect]
     Indication: CONTRACEPTION
     Route: 048
     Dates: start: 20070601
  2. YASMIN [Suspect]
     Indication: CONTRACEPTION
     Route: 048
  3. IBUPROFEN [Concomitant]

REACTIONS (4)
  - ABDOMINAL PAIN LOWER [None]
  - ABDOMINAL PAIN UPPER [None]
  - CHOLECYSTITIS CHRONIC [None]
  - DECREASED APPETITE [None]
